FAERS Safety Report 9800362 (Version 2)
Quarter: 2014Q1

REPORT INFORMATION
  Report Type: Report from Study
  Country: CA (occurrence: CA)
  Receive Date: 20140106
  Receipt Date: 20140116
  Transmission Date: 20141002
  Serious: Yes (Other)
  Sender: FDA-Public Use
  Company Number: CA-ABBVIE-14P-028-1186352-00

PATIENT
  Age: 37 Year
  Sex: Female

DRUGS (3)
  1. HUMIRA [Suspect]
     Indication: CROHN^S DISEASE
     Route: 058
     Dates: start: 20070510
  2. METHOTREXATE [Concomitant]
     Route: 058
  3. TEGRETOL [Concomitant]
     Indication: EPILEPSY

REACTIONS (3)
  - Grand mal convulsion [Recovered/Resolved]
  - Influenza [Unknown]
  - Convulsion [Unknown]
